FAERS Safety Report 5143188-X (Version None)
Quarter: 2006Q4

REPORT INFORMATION
  Report Type: 
  Country: None (occurrence: None)
  Receive Date: 20061103
  Receipt Date: 20061026
  Transmission Date: 20070319
  Serious: Yes (Hospitalization, Disabling)
  Sender: FDA-Public Use
  Company Number: JP-AVENTIS-200613369JP

PATIENT
  Age: 41 Year
  Sex: Female
  Weight: 42 kg

DRUGS (11)
  1. LANTUS [Suspect]
     Indication: DIABETES MELLITUS INSULIN-DEPENDENT
     Dosage: DOSE: 13 + 11 UNITS/DAY
     Route: 058
     Dates: start: 20050720, end: 20060101
  2. LANTUS [Suspect]
     Dosage: DOSE: 13 UNITS/DAY
     Route: 058
     Dates: start: 20060101
  3. OPTICLIK (INSULIN INJECTION PEN) [Suspect]
  4. NOVORAPID [Suspect]
     Indication: DIABETES MELLITUS INSULIN-DEPENDENT
     Dosage: DOSE: ABOUT 7 UNITS
     Route: 058
     Dates: start: 20040324
  5. MERCAZOLE [Concomitant]
     Indication: HYPERTHYROIDISM
     Route: 048
     Dates: start: 19940101
  6. OMEPRAL                            /00661201/ [Concomitant]
     Indication: REFLUX OESOPHAGITIS
     Route: 048
     Dates: start: 20040726
  7. LUVOX [Concomitant]
     Indication: DEPRESSION
     Route: 048
     Dates: start: 20051017
  8. TETRAMIDE [Concomitant]
     Indication: DEPRESSION
     Route: 048
     Dates: start: 20051214
  9. ETIZOLAM [Concomitant]
     Indication: DEPRESSION
     Route: 048
     Dates: start: 20051017
  10. ROHYPNOL [Concomitant]
     Indication: DEPRESSION
     Route: 048
     Dates: start: 20051017
  11. HALCION [Concomitant]
     Indication: DEPRESSION
     Route: 048
     Dates: start: 20051017

REACTIONS (7)
  - DEPRESSED LEVEL OF CONSCIOUSNESS [None]
  - DISORIENTATION [None]
  - HYPOAESTHESIA [None]
  - HYPOGLYCAEMIA [None]
  - MEMORY IMPAIRMENT [None]
  - PARALYSIS FLACCID [None]
  - SOMNOLENCE [None]
